FAERS Safety Report 4674977-3 (Version None)
Quarter: 2005Q2

REPORT INFORMATION
  Report Type: 
  Country: None (occurrence: None)
  Receive Date: 20050526
  Receipt Date: 20050512
  Transmission Date: 20051028
  Serious: Yes (Other)
  Sender: FDA-Public Use
  Company Number: ITWYE660612MAY05

PATIENT

DRUGS (3)
  1. ENBREL [Suspect]
     Indication: PSORIASIS
     Dosage: 4 WEEKS OF THERAPY: THE DRUG WAS SUSPENDED THE DAY BEFORE THE SAE OCCURRENCE
  2. ISONIAZID [Suspect]
     Indication: TUBERCULOSIS PROPHYLAXIS
     Dosage: 4 WEEKS OF THERAPY
  3. BENADON [Suspect]
     Dosage: 4 WEEKS OF THERAPY

REACTIONS (1)
  - STEVENS-JOHNSON SYNDROME [None]
